FAERS Safety Report 23354344 (Version 1)
Quarter: 2024Q1

REPORT INFORMATION
  Report Type: Spontaneous
  Country: US (occurrence: US)
  Receive Date: 20240101
  Receipt Date: 20240101
  Transmission Date: 20240409
  Serious: No
  Sender: FDA-Public Use
  Company Number: US-TORRENT-00013067

PATIENT
  Age: 42 Year
  Sex: Female
  Weight: 58 kg

DRUGS (1)
  1. ESCITALOPRAM OXALATE [Suspect]
     Active Substance: ESCITALOPRAM OXALATE
     Indication: Depression
     Dosage: 10 MG ONCE A DAY
     Route: 048
     Dates: start: 20231217

REACTIONS (2)
  - Paraesthesia oral [Recovered/Resolved with Sequelae]
  - Pharyngeal paraesthesia [Recovered/Resolved with Sequelae]

NARRATIVE: CASE EVENT DATE: 20231217
